FAERS Safety Report 7589390-9 (Version None)
Quarter: 2011Q3

REPORT INFORMATION
  Report Type: 
  Country: None (occurrence: None)
  Receive Date: 20110705
  Receipt Date: 20110622
  Transmission Date: 20111222
  Serious: Yes (Hospitalization, Other)
  Sender: FDA-Public Use
  Company Number: RU-ROCHE-761883

PATIENT
  Sex: Male
  Weight: 72 kg

DRUGS (8)
  1. ACTEMRA [Suspect]
     Indication: RHEUMATOID ARTHRITIS
     Dosage: TOTAL MONTHLY DOSE: 600 MG. FREQUENCY: ONCE
     Route: 041
     Dates: start: 20110121, end: 20110201
  2. METHOTREXATE [Concomitant]
     Route: 048
  3. PREDNISONE [Concomitant]
  4. FOLIC ACID [Concomitant]
     Dates: end: 20110201
  5. SUPRASTIN [Concomitant]
     Dosage: DRUG NAME: SUPRASTINUM
     Dates: end: 20110201
  6. METHOTREXATE [Concomitant]
     Indication: RHEUMATOID ARTHRITIS
     Route: 048
     Dates: end: 20110201
  7. FOLIC ACID [Concomitant]
  8. MELOXICAM [Concomitant]
     Dates: end: 20110201

REACTIONS (9)
  - HERPES VIRUS INFECTION [None]
  - LEUKOPENIA [None]
  - TOXIC SKIN ERUPTION [None]
  - BLOOD ALKALINE PHOSPHATASE INCREASED [None]
  - THROMBOCYTOPENIA [None]
  - NEUTROPHIL TOXIC GRANULATION PRESENT [None]
  - HORMONE LEVEL ABNORMAL [None]
  - RED BLOOD CELL SEDIMENTATION RATE INCREASED [None]
  - PROTEIN TOTAL DECREASED [None]
